FAERS Safety Report 8124560-2 (Version None)
Quarter: 2012Q1

REPORT INFORMATION
  Report Type: 
  Country: None (occurrence: None)
  Receive Date: 20120209
  Receipt Date: 20120202
  Transmission Date: 20120608
  Serious: Yes (Hospitalization)
  Sender: FDA-Public Use
  Company Number: FR-SANOFI-AVENTIS-2012SA007033

PATIENT
  Age: 45 Year
  Sex: Female
  Weight: 96.6 kg

DRUGS (1)
  1. FASTURTEC [Suspect]
     Route: 042
     Dates: start: 20120116, end: 20120116

REACTIONS (4)
  - TACHYCARDIA [None]
  - RASH [None]
  - PRURITUS [None]
  - MALAISE [None]
